FAERS Safety Report 7524917-4 (Version None)
Quarter: 2011Q2

REPORT INFORMATION
  Report Type: 
  Country: None (occurrence: None)
  Receive Date: 20110606
  Receipt Date: 20110125
  Transmission Date: 20111010
  Serious: Yes (Other)
  Sender: FDA-Public Use
  Company Number: JP-BAYER-200912843BYL

PATIENT
  Age: 80 Year
  Sex: Male

DRUGS (24)
  1. NEXAVAR [Suspect]
     Route: 048
     Dates: start: 20090812, end: 20090813
  2. NEXAVAR [Suspect]
     Route: 048
     Dates: start: 20090814, end: 20090814
  3. FLIVAS [Concomitant]
     Route: 048
     Dates: start: 20090604, end: 20090623
  4. FLIVAS [Concomitant]
     Route: 048
     Dates: start: 20090629, end: 20090820
  5. VITAMEDIN [Concomitant]
     Route: 042
     Dates: start: 20090721, end: 20090721
  6. FERROUS CITRATE [Concomitant]
     Route: 048
     Dates: start: 20090629, end: 20090820
  7. GLUCOSE [Concomitant]
     Route: 042
     Dates: start: 20090724, end: 20090724
  8. LACTEC [Concomitant]
     Route: 041
     Dates: start: 20090724, end: 20090724
  9. VITAMEDIN [Concomitant]
     Route: 042
     Dates: start: 20090718, end: 20090718
  10. PRIMPERAN TAB [Concomitant]
     Route: 042
     Dates: start: 20090724, end: 20090724
  11. LACTEC [Concomitant]
     Route: 041
     Dates: start: 20090718, end: 20090718
  12. FERROUS CITRATE [Concomitant]
     Indication: ANAEMIA
     Route: 048
     Dates: start: 20090604, end: 20090623
  13. KERATINAMIN [Concomitant]
     Indication: PROPHYLAXIS
     Dosage: SEVERAL TIMES/DAY
     Route: 061
     Dates: start: 20090706, end: 20090801
  14. VITAMEDIN [Concomitant]
     Route: 042
     Dates: start: 20090724, end: 20090724
  15. PRIMPERAN TAB [Concomitant]
     Route: 042
     Dates: start: 20090718, end: 20090718
  16. PRIMPERAN TAB [Concomitant]
     Route: 042
     Dates: start: 20090721, end: 20090721
  17. NEXAVAR [Suspect]
     Indication: RENAL CELL CARCINOMA
     Dosage: MORNING,EVENING
     Route: 048
     Dates: start: 20090706, end: 20090718
  18. GLUCOSE [Concomitant]
     Route: 042
     Dates: start: 20090721, end: 20090721
  19. MARZULENE [Concomitant]
     Indication: PROPHYLAXIS
     Dosage: AFTER LUNCH
     Route: 048
     Dates: start: 20090604, end: 20090607
  20. LANSOPRAZOLE [Concomitant]
     Dosage: 15 MG (DAILY DOSE), , ORAL
     Route: 048
     Dates: start: 20090724, end: 20090731
  21. LACTEC [Concomitant]
     Route: 041
     Dates: start: 20090721, end: 20090721
  22. LANSOPRAZOLE [Concomitant]
     Indication: GASTRITIS PROPHYLAXIS
     Dosage: 15 MG (DAILY DOSE), , ORAL
     Route: 048
     Dates: start: 20090721, end: 20090723
  23. GLUCOSE [Concomitant]
     Route: 042
     Dates: start: 20090718, end: 20090718
  24. LOXONIN [Concomitant]
     Indication: PROPHYLAXIS
     Dosage: AFTER LUNCH
     Route: 048
     Dates: start: 20090604, end: 20090607

REACTIONS (9)
  - C-REACTIVE PROTEIN INCREASED [None]
  - ERYTHEMA MULTIFORME [None]
  - BLOOD LACTATE DEHYDROGENASE INCREASED [None]
  - FATIGUE [None]
  - LIPASE INCREASED [None]
  - FIBRIN DEGRADATION PRODUCTS INCREASED [None]
  - FIBRIN D DIMER INCREASED [None]
  - STOMATITIS [None]
  - PALMAR-PLANTAR ERYTHRODYSAESTHESIA SYNDROME [None]
